FAERS Safety Report 6629586-3 (Version None)
Quarter: 2010Q1

REPORT INFORMATION
  Report Type: 
  Country: None (occurrence: None)
  Receive Date: 20100311
  Receipt Date: 20100208
  Transmission Date: 20100710
  Serious: No
  Sender: FDA-Public Use
  Company Number: US-BAYER-201011936BCC

PATIENT
  Age: 89 Year
  Sex: Female
  Weight: 63 kg

DRUGS (4)
  1. ALEVE [Suspect]
     Indication: ARTHRALGIA
     Dosage: AS USED: 440/220 MG  UNIT DOSE: 220 MG
     Route: 048
     Dates: start: 20100124, end: 20100124
  2. ALEVE [Suspect]
     Dosage: TOTAL DAILY DOSE: 440 MG  UNIT DOSE: 220 MG
     Route: 048
     Dates: start: 20100125, end: 20100127
  3. CENTRUM VITAMIN [Concomitant]
     Route: 065
  4. CALCIUM WITH VITAMIN D [Concomitant]
     Route: 065

REACTIONS (1)
  - NAUSEA [None]
